FAERS Safety Report 7583604-7 (Version None)
Quarter: 2011Q2

REPORT INFORMATION
  Report Type: 
  Country: None (occurrence: None)
  Receive Date: 20110630
  Receipt Date: 20110624
  Transmission Date: 20111010
  Serious: Yes (Hospitalization)
  Sender: FDA-Public Use
  Company Number: A0932945A

PATIENT
  Age: 42 Year
  Sex: Female

DRUGS (1)
  1. FLOLAN [Suspect]
     Dosage: 3.6MLH CONTINUOUS
     Route: 042
     Dates: start: 20100101

REACTIONS (1)
  - DEVICE RELATED INFECTION [None]
